FAERS Safety Report 13239014 (Version 1)
Quarter: 2017Q1

REPORT INFORMATION
  Report Type: Spontaneous
  Country: US (occurrence: US)
  Receive Date: 20170215
  Receipt Date: 20170215
  Transmission Date: 20170428
  Serious: No
  Sender: FDA-Public Use
  Company Number: None

PATIENT
  Age: 22 Year
  Sex: Female
  Weight: 77.11 kg

DRUGS (7)
  1. LO LOESTRIN FE [Suspect]
     Active Substance: ETHINYL ESTRADIOL\NORETHINDRONE ACETATE
     Indication: AMENORRHOEA
     Dosage: ONE TABLET DAILY AS DIRECTED ORAL
     Route: 048
  2. LO LOESTRIN FE [Suspect]
     Active Substance: ETHINYL ESTRADIOL\NORETHINDRONE ACETATE
     Indication: TIC
     Dosage: ONE TABLET DAILY AS DIRECTED ORAL
     Route: 048
  3. FERRASORB [Concomitant]
  4. XURIDEN [Concomitant]
     Active Substance: URIDINE TRIACETATE
  5. MULTIVITAMIN [Concomitant]
     Active Substance: VITAMINS
  6. MAGNESIUM OXIDE. [Concomitant]
     Active Substance: MAGNESIUM OXIDE
  7. NEUROPATH-EASE [Concomitant]

REACTIONS (3)
  - Alopecia [None]
  - Hair disorder [None]
  - Pruritus [None]

NARRATIVE: CASE EVENT DATE: 201701
